FAERS Safety Report 20660297 (Version 1)
Quarter: 2022Q1

REPORT INFORMATION
  Report Type: Spontaneous
  Country: US (occurrence: US)
  Receive Date: 20220331
  Receipt Date: 20220331
  Transmission Date: 20220423
  Serious: No
  Sender: FDA-Public Use
  Company Number: US-IBSA PHARMA INC.-2021-IBS-01453

PATIENT
  Age: 58 Year

DRUGS (3)
  1. FLECTOR [Suspect]
     Active Substance: DICLOFENAC EPOLAMINE
     Indication: Arthritis
     Route: 062
     Dates: start: 201812
  2. FLECTOR [Suspect]
     Active Substance: DICLOFENAC EPOLAMINE
     Indication: Nerve compression
     Route: 062
  3. FLECTOR [Suspect]
     Active Substance: DICLOFENAC EPOLAMINE
     Indication: Back disorder
     Route: 062
     Dates: start: 2018

REACTIONS (6)
  - Gait disturbance [Unknown]
  - Off label use [Unknown]
  - Intercepted product prescribing error [Unknown]
  - Poor quality device used [Unknown]
  - Device breakage [Unknown]
  - Drug effective for unapproved indication [Unknown]
